FAERS Safety Report 10143301 (Version 1)
Quarter: 2014Q2

REPORT INFORMATION
  Report Type: Spontaneous
  Country: US (occurrence: None)
  Receive Date: 20140429
  Receipt Date: 20140429
  Transmission Date: 20141212
  Serious: No
  Sender: FDA-Public Use
  Company Number: None

PATIENT
  Age: 82 Year
  Sex: Female

DRUGS (5)
  1. IMBRUVICA [Suspect]
     Indication: DRUG THERAPY
     Route: 048
     Dates: start: 20140326
  2. ASYNTHRIDE [Concomitant]
  3. ASYNTHRIDE [Concomitant]
  4. EMPROZOLE [Concomitant]
  5. AMOXICLAVE [Concomitant]

REACTIONS (2)
  - Melaena [None]
  - Therapy cessation [None]
